FAERS Safety Report 5564599-4 (Version None)
Quarter: 2007Q4

REPORT INFORMATION
  Report Type: 
  Country: None (occurrence: None)
  Receive Date: 20071218
  Receipt Date: 20071211
  Transmission Date: 20080405
  Serious: Yes (Death, Hospitalization)
  Sender: FDA-Public Use
  Company Number: GB-AVENTIS-200721396GDDC

PATIENT
  Age: 52 Year
  Sex: Female

DRUGS (4)
  1. TAXOTERE [Suspect]
     Dosage: DOSE: UNK
  2. FLUOROURACIL [Concomitant]
  3. EPIRUBICIN [Concomitant]
  4. CYCLOPHOSPHAMIDE [Concomitant]

REACTIONS (2)
  - INTESTINAL OBSTRUCTION [None]
  - SPLENIC RUPTURE [None]
